FAERS Safety Report 24662380 (Version 2)
Quarter: 2025Q2

REPORT INFORMATION
  Report Type: Report from Study
  Country: MX (occurrence: MX)
  Receive Date: 20241125
  Receipt Date: 20250618
  Transmission Date: 20250717
  Serious: Yes (Other)
  Sender: ABBVIE
  Company Number: MX-ABBVIE-6012095

PATIENT
  Sex: Male
  Weight: 69 kg

DRUGS (2)
  1. VENCLEXTA [Suspect]
     Active Substance: VENETOCLAX
     Indication: Chronic lymphocytic leukaemia
     Dosage: 400 MILLIGRAM,?FORM STRENGTH: 100 MILLIGRAM
     Route: 048
     Dates: start: 20241007
  2. IPRATROPIUM [Concomitant]
     Active Substance: IPRATROPIUM
     Indication: Lung disorder
     Route: 055

REACTIONS (14)
  - Lung induration [Unknown]
  - Renal cyst [Unknown]
  - Fatigue [Unknown]
  - Bone neoplasm [Recovering/Resolving]
  - Musculoskeletal chest pain [Not Recovered/Not Resolved]
  - Lymphocyte count abnormal [Unknown]
  - Prostatitis [Unknown]
  - Bone pain [Not Recovered/Not Resolved]
  - Decreased appetite [Recovering/Resolving]
  - Skin discolouration [Not Recovered/Not Resolved]
  - Weight decreased [Not Recovered/Not Resolved]
  - Peripheral swelling [Unknown]
  - Body height decreased [Unknown]
  - Prostatomegaly [Unknown]

NARRATIVE: CASE EVENT DATE: 20241001
